FAERS Safety Report 9643181 (Version 1)
Quarter: 2013Q4

REPORT INFORMATION
  Report Type: Spontaneous
  Country: US (occurrence: None)
  Receive Date: 20131022
  Receipt Date: 20131022
  Transmission Date: 20140711
  Serious: Yes (Other)
  Sender: FDA-Public Use
  Company Number: CL-529-2013

PATIENT
  Age: 60 Year
  Sex: Female
  Weight: 75 kg

DRUGS (21)
  1. MIDAZOLAM [Suspect]
     Indication: ANAESTHESIA
     Dosage: 4 MG/HR IV
     Route: 042
  2. PROPOFOL [Suspect]
     Indication: ANAESTHESIA
     Dosage: 1-5MG/KG/HR AS NEEDED IV
     Route: 042
  3. KETAMINE [Suspect]
     Indication: ANAESTHESIA
     Dosage: 20-40 MG Q40 MINUTES PRN, TOTAL DOSE 120 MG; INTRAVENOUS
     Route: 042
  4. FENTANYL [Suspect]
     Indication: ANAESTHESIA
     Dosage: 450 MCG/HR AS MAINTENANCE DOSE; 50-100 MCG Q5 MIN PRN, TOTAL DOSE 11000 MCG INTRAVENOUS
     Route: 042
  5. HYDROMORPHONE [Suspect]
     Indication: ANAESTHESIA
     Dosage: 8 MG/HR IV AS MAINTENANCE DOSE (3 MG IV Q30 MINUTES PRN, TOTAL DOSE 210MG; INTRAVENOUS
     Route: 042
  6. SALBUTAMOL [Concomitant]
  7. FLUTICASONE [Concomitant]
  8. RABEPRAZOLE [Concomitant]
  9. FERROUS FUMARATE [Concomitant]
  10. METHADONE [Concomitant]
  11. RAMIPRIL [Concomitant]
  12. PIPERACILLIN/TAZOBACTAM [Concomitant]
  13. TAZOBACTAM [Concomitant]
  14. IMMUNOGLOBULINS [Concomitant]
  15. DOMPERIDONE [Concomitant]
  16. DOPAMINE [Concomitant]
  17. PENICILLIN G [Concomitant]
  18. CLINDAMYCIN [Concomitant]
  19. NOREPINEPHRINE [Concomitant]
  20. DOBUTAMINE [Concomitant]
  21. VASOPRESSIN [Concomitant]

REACTIONS (11)
  - Drug ineffective [None]
  - Drug interaction [None]
  - Asthenia [None]
  - Depressed level of consciousness [None]
  - Weight decreased [None]
  - Hypoglycaemia [None]
  - Cellulitis [None]
  - Necrotising fasciitis [None]
  - Sepsis [None]
  - Streptococcus test positive [None]
  - Pain [None]
